FAERS Safety Report 6372453-3 (Version None)
Quarter: 2009Q3

REPORT INFORMATION
  Report Type: 
  Country: None (occurrence: None)
  Receive Date: 20090924
  Receipt Date: 20090702
  Transmission Date: 20100115
  Serious: Yes (Hospitalization, Other)
  Sender: FDA-Public Use
  Company Number: US-ASTRAZENECA-2008UW14993

PATIENT
  Age: 433 Month
  Sex: Male
  Weight: 122.9 kg

DRUGS (9)
  1. SEROQUEL [Suspect]
     Indication: SLEEP DISORDER
     Route: 048
     Dates: start: 20041001
  2. SEROQUEL [Suspect]
     Route: 048
  3. LEVAQUIN [Concomitant]
  4. PROTONIX [Concomitant]
  5. AMBIEN [Concomitant]
  6. AVAPRO [Concomitant]
  7. FLOMAX [Concomitant]
  8. CYMBALTA [Concomitant]
  9. MIRAPEX [Concomitant]

REACTIONS (6)
  - ABDOMINAL PAIN [None]
  - BACK PAIN [None]
  - INFECTION [None]
  - TARDIVE DYSKINESIA [None]
  - TYPE 2 DIABETES MELLITUS [None]
  - WEIGHT INCREASED [None]
